FAERS Safety Report 6843576-7 (Version None)
Quarter: 2010Q2

REPORT INFORMATION
  Report Type: 
  Country: None (occurrence: None)
  Receive Date: 20100629
  Receipt Date: 20100419
  Transmission Date: 20101027
  Serious: No
  Sender: FDA-Public Use
  Company Number: US-WYE-H14796510

PATIENT
  Age: 61 Year
  Sex: Male

DRUGS (1)
  1. PRISTIQ [Suspect]
     Dosage: 50 MG TABLET TWICE DAILY, THEN ONE 100 MG

REACTIONS (1)
  - ABDOMINAL DISCOMFORT [None]
